FAERS Safety Report 12290288 (Version 1)
Quarter: 2016Q2

REPORT INFORMATION
  Report Type: Spontaneous
  Country: US (occurrence: US)
  Receive Date: 20160421
  Receipt Date: 20160421
  Transmission Date: 20160815
  Serious: No
  Sender: FDA-Public Use
  Company Number: US-ALVOGEN-2015-ALVOGEN-020328

PATIENT
  Age: 72 Year
  Sex: Female
  Weight: 87.27 kg

DRUGS (14)
  1. ROSUVASTATIN CALCIUM. [Concomitant]
     Active Substance: ROSUVASTATIN CALCIUM
     Indication: BLOOD CHOLESTEROL ABNORMAL
     Route: 048
     Dates: start: 2013
  2. FAMOTIDINE. [Concomitant]
     Active Substance: FAMOTIDINE
     Indication: IMPAIRED GASTRIC EMPTYING
     Dosage: AS REQUIRED
     Route: 048
  3. DOMPERIDONE [Concomitant]
     Active Substance: DOMPERIDONE
     Indication: ABDOMINAL DISCOMFORT
     Route: 048
     Dates: start: 2000
  4. OMEPRAZOLE. [Concomitant]
     Active Substance: OMEPRAZOLE
     Indication: IMPAIRED GASTRIC EMPTYING
     Route: 048
     Dates: start: 2013, end: 2013
  5. NO DRUG NAME [Concomitant]
     Indication: MUSCULOSKELETAL DISCOMFORT
     Dates: start: 2014
  6. COLECALCIFEROL [Concomitant]
     Active Substance: CHOLECALCIFEROL
     Indication: VITAMIN D DECREASED
     Dates: start: 2014
  7. ASCORBIC ACID/BIOTIN/CALCIUM/CALCIUM PHOSPHATE DIBASIC/CHROMIC CHLORIDE/CUPRIC OXIDE/CYANOCOBALAMIN/ [Concomitant]
     Indication: HYPOVITAMINOSIS
     Route: 048
  8. NABUMETONE. [Concomitant]
     Active Substance: NABUMETONE
     Indication: ARTHRITIS
     Route: 048
     Dates: start: 2005
  9. IRBESARTAN. [Concomitant]
     Active Substance: IRBESARTAN
     Indication: BLOOD PRESSURE ABNORMAL
     Route: 048
  10. ATENOLOL. [Suspect]
     Active Substance: ATENOLOL
     Indication: HYPERTENSION
     Route: 048
     Dates: start: 201403
  11. ESOMEPRAZOLE SODIUM. [Concomitant]
     Active Substance: ESOMEPRAZOLE SODIUM
     Indication: IMPAIRED GASTRIC EMPTYING
     Route: 048
     Dates: start: 2013
  12. CYANOCOBALAMIN. [Concomitant]
     Active Substance: CYANOCOBALAMIN
     Indication: MUSCULOSKELETAL DISCOMFORT
     Dates: start: 2014
  13. RANITIDINE HYDROCHLORIDE. [Concomitant]
     Active Substance: RANITIDINE HYDROCHLORIDE
     Indication: PRODUCT USED FOR UNKNOWN INDICATION
     Route: 048
  14. ACETYLSALICYLIC ACID [Concomitant]
     Active Substance: ASPIRIN
     Indication: CARDIOVASCULAR DISORDER
     Route: 048
     Dates: start: 1995

REACTIONS (1)
  - Alopecia [Not Recovered/Not Resolved]
